FAERS Safety Report 6779069-5 (Version None)
Quarter: 2010Q2

REPORT INFORMATION
  Report Type: 
  Country: None (occurrence: None)
  Receive Date: 20100618
  Receipt Date: 20100609
  Transmission Date: 20101027
  Serious: Yes (Hospitalization)
  Sender: FDA-Public Use
  Company Number: FR-PFIZER INC-2010071906

PATIENT
  Age: 57 Year
  Sex: Male

DRUGS (6)
  1. TAHOR [Suspect]
     Dosage: 40 MG, 1X/DAY
     Route: 048
     Dates: start: 20100201
  2. PLAVIX [Suspect]
     Dosage: 75 MG, 1X/DAY
     Route: 048
     Dates: start: 20100201
  3. KARDEGIC [Suspect]
     Dosage: 160 MG, 1X/DAY
     Route: 048
     Dates: start: 20100201
  4. TRIATEC [Suspect]
     Dosage: 2.5 MG, 2X/DAY
     Route: 048
     Dates: start: 20100201
  5. CARDENSIEL [Suspect]
     Dosage: 2.5 MG, 1X/DAY
     Route: 048
     Dates: start: 20100201
  6. INSULIN DETEMIR [Concomitant]
     Dosage: 14 IU, 2X/DAY
     Route: 058
     Dates: start: 20060101

REACTIONS (3)
  - ERECTILE DYSFUNCTION [None]
  - GYNAECOMASTIA [None]
  - LIBIDO DECREASED [None]
